FAERS Safety Report 8217706-9 (Version None)
Quarter: 2012Q1

REPORT INFORMATION
  Report Type: 
  Country: None (occurrence: None)
  Receive Date: 20120319
  Receipt Date: 20120316
  Transmission Date: 20120608
  Serious: Yes (Death)
  Sender: FDA-Public Use
  Company Number: TT-B.I. PHARMACEUTICALS,INC./RIDGEFIELD-2012-CN-00592CN

PATIENT
  Age: 66 Year
  Sex: Male

DRUGS (2)
  1. SYMBICORT [Concomitant]
  2. SPIRIVA [Suspect]
     Indication: CHRONIC OBSTRUCTIVE PULMONARY DISEASE

REACTIONS (1)
  - CHRONIC OBSTRUCTIVE PULMONARY DISEASE [None]
